FAERS Safety Report 4417418-3 (Version None)
Quarter: 2004Q3

REPORT INFORMATION
  Report Type: 
  Country: None (occurrence: None)
  Receive Date: 20040803
  Receipt Date: 20040721
  Transmission Date: 20050211
  Serious: Yes (Hospitalization, Disabling, Other)
  Sender: FDA-Public Use
  Company Number: 001-0945-M0200657

PATIENT
  Age: 44 Year
  Sex: Female
  Weight: 54.4316 kg

DRUGS (29)
  1. NEURONTIN [Suspect]
     Indication: BIPOLAR DISORDER
     Dosage: 1800 MG (DAILY) ORAL
     Route: 048
     Dates: start: 19990512, end: 20020422
  2. LAMOTRIGINE [Concomitant]
  3. LITHIUM CARBONATE [Concomitant]
  4. CLONAZEPAM [Concomitant]
  5. METHOLPHENIDATE HYDROCHLORIDE (METHYLPHENIDATE HYDROCHLORIDE) [Concomitant]
  6. LEVOTHYROXINE SODIUM [Concomitant]
  7. LIOTHYROXINE SODIUM (LIOTHYROXINE SODIUM) [Concomitant]
  8. SERTRALINE HCL [Concomitant]
  9. PILOCARPINE HYDROCHLORIDE [Concomitant]
  10. METOPROLOL SUCCINATE [Concomitant]
  11. LANSOPRAZOLE [Concomitant]
  12. HYOSCYAMINE SULFATE AND PHENOBARBITAL [Concomitant]
  13. DILTIAZEM HYDROCHLORIDE [Concomitant]
  14. BUPROPION HYDROCHLORIDE [Concomitant]
  15. CELEBREX [Concomitant]
  16. QUETIAPINE FUMARATE (QUETIAPINE FUMARATE) [Concomitant]
  17. METOPROLOL TARTRATE [Concomitant]
  18. CITALOPRAM HYDROBROMIDE (CITALOPRAM HYDROBROMIDE) [Concomitant]
  19. HYOSCYAMINE SULFATE AND PHENOBARBITAL [Concomitant]
  20. OLANZAPINE [Concomitant]
  21. OMEPRAZOLE [Concomitant]
  22. NASAL PREPARATIONS (NASAL PREPARATIONS) [Concomitant]
  23. NEFAZODONE HCL [Concomitant]
  24. TOTOLIN (GUAIFENESIN, PHENYLPROPANOLAMINE HYDROCHLORIDE) [Concomitant]
  25. MECLOZINE (MECLOZINE) [Concomitant]
  26. FLUTICASONE PROPIONATE [Concomitant]
  27. TRIMETHOBENZAMIDE HYDROCHLORIDE (TRIMETHOBENZAMIDE HYDROCHLORIDE) [Concomitant]
  28. RESPAIRE SR 120 (GUAIFENESIN, PSEUDOEPHEDRINE HYDROCHLORIDE) [Concomitant]
  29. RISPERDAL [Concomitant]

REACTIONS (209)
  - ABDOMINAL PAIN LOWER [None]
  - ABDOMINAL PAIN UPPER [None]
  - ABNORMAL BEHAVIOUR [None]
  - ACUTE SINUSITIS [None]
  - ANGER [None]
  - ANGIONEUROTIC OEDEMA [None]
  - ANIMAL BITE [None]
  - ANKLE FRACTURE [None]
  - ANOREXIA [None]
  - ANTINUCLEAR ANTIBODY POSITIVE [None]
  - ANXIETY [None]
  - ARTHRALGIA [None]
  - ARTHRITIS [None]
  - ARTHROPOD BITE [None]
  - ASTHENIA [None]
  - ASTHMA [None]
  - ASTIGMATISM [None]
  - ATAXIA [None]
  - ATRIAL FLUTTER [None]
  - ATRIAL TACHYCARDIA [None]
  - BACK PAIN [None]
  - BACTERAEMIA [None]
  - BALANCE DISORDER [None]
  - BLEPHARITIS [None]
  - BLEPHAROSPASM [None]
  - BLISTER [None]
  - BLOOD ALBUMIN DECREASED [None]
  - BLOOD GLUCOSE INCREASED [None]
  - BLOOD THYROID STIMULATING HORMONE DECREASED [None]
  - BLOOD UREA DECREASED [None]
  - BRAIN DAMAGE [None]
  - BREAST MASS [None]
  - BRONCHITIS [None]
  - BRONCHOSPASM [None]
  - BRUXISM [None]
  - BURNING SENSATION [None]
  - CARDIOVASCULAR DISORDER [None]
  - CARPAL TUNNEL SYNDROME [None]
  - CELLULITIS [None]
  - CEREBRAL DISORDER [None]
  - CERVICITIS [None]
  - CHANGE OF BOWEL HABIT [None]
  - CHEST PAIN [None]
  - CHROMATURIA [None]
  - COGNITIVE DISORDER [None]
  - CONDITION AGGRAVATED [None]
  - CONSTIPATION [None]
  - CONTUSION [None]
  - CONVULSION [None]
  - COUGH [None]
  - CRYING [None]
  - DEAFNESS [None]
  - DEPRESSION [None]
  - DIARRHOEA [None]
  - DIPLOPIA [None]
  - DISEASE RECURRENCE [None]
  - DISSOCIATIVE DISORDER [None]
  - DISTURBANCE IN ATTENTION [None]
  - DRUG HYPERSENSITIVITY [None]
  - DRUG WITHDRAWAL SYNDROME [None]
  - DRY MOUTH [None]
  - DYSARTHRIA [None]
  - DYSGEUSIA [None]
  - DYSKINESIA [None]
  - DYSPEPSIA [None]
  - DYSPHAGIA [None]
  - DYSPHASIA [None]
  - DYSPNOEA [None]
  - DYSURIA [None]
  - EAR PAIN [None]
  - ECCHYMOSIS [None]
  - ENTERITIS INFECTIOUS [None]
  - EUSTACHIAN TUBE DYSFUNCTION [None]
  - EYELID PTOSIS [None]
  - FACIAL BONES FRACTURE [None]
  - FALL [None]
  - FATIGUE [None]
  - FEELING ABNORMAL [None]
  - FEELING JITTERY [None]
  - FIBROCYSTIC BREAST DISEASE [None]
  - FLAT AFFECT [None]
  - GASTROINTESTINAL DISORDER [None]
  - GASTROOESOPHAGEAL REFLUX DISEASE [None]
  - GINGIVAL PAIN [None]
  - GLOSSODYNIA [None]
  - GOITRE [None]
  - GRANULOMA [None]
  - HAEMORRHAGE [None]
  - HAND FRACTURE [None]
  - HEAD INJURY [None]
  - HEADACHE [None]
  - HEART RATE INCREASED [None]
  - HEART RATE IRREGULAR [None]
  - HORDEOLUM [None]
  - HOT FLUSH [None]
  - HYPERSOMNIA [None]
  - HYPOGLYCAEMIA [None]
  - HYPOTHYROIDISM [None]
  - IMPAIRED HEALING [None]
  - IMPRISONMENT [None]
  - INCREASED UPPER AIRWAY SECRETION [None]
  - INCREASED VISCOSITY OF BRONCHIAL SECRETION [None]
  - INFLAMMATION [None]
  - INSOMNIA [None]
  - INTENTIONAL MISUSE [None]
  - INTERVERTEBRAL DISC DEGENERATION [None]
  - INTERVERTEBRAL DISC DISORDER [None]
  - IRRITABILITY [None]
  - IRRITABLE BOWEL SYNDROME [None]
  - JOINT INJURY [None]
  - JOINT SPRAIN [None]
  - JOINT SWELLING [None]
  - KERATOCONJUNCTIVITIS SICCA [None]
  - LABORATORY TEST ABNORMAL [None]
  - LACRIMATION INCREASED [None]
  - LARYNGITIS [None]
  - LOSS OF CONSCIOUSNESS [None]
  - MACROGLOSSIA [None]
  - MALNUTRITION [None]
  - MAMMOGRAM ABNORMAL [None]
  - MANIA [None]
  - MEAN CELL HAEMOGLOBIN INCREASED [None]
  - MENIERE'S DISEASE [None]
  - MENORRHAGIA [None]
  - MENTAL IMPAIRMENT [None]
  - MOUTH BREATHING [None]
  - MULTIPLE FRACTURES [None]
  - MUSCLE SPASMS [None]
  - MUSCLE TWITCHING [None]
  - MYOPIA [None]
  - NASAL DISCOMFORT [None]
  - NASAL ULCER [None]
  - NAUSEA [None]
  - NERVE INJURY [None]
  - NERVOUS SYSTEM DISORDER [None]
  - NYSTAGMUS [None]
  - OEDEMA PERIPHERAL [None]
  - OESOPHAGEAL DISORDER [None]
  - OTITIS MEDIA [None]
  - OVARIAN CYST [None]
  - OVARIAN CYST RUPTURED [None]
  - OVARIAN INFECTION [None]
  - OVARIAN MASS [None]
  - PAIN [None]
  - PAIN IN EXTREMITY [None]
  - PCO2 DECREASED [None]
  - PELVIC INFLAMMATORY DISEASE [None]
  - PHARYNGEAL INJURY [None]
  - PHARYNGITIS [None]
  - PHOTOPHOBIA [None]
  - PITTING OEDEMA [None]
  - POLLAKIURIA [None]
  - POLYNEUROPATHY [None]
  - PROPIONIBACTERIUM INFECTION [None]
  - PRURITUS [None]
  - PSORIASIS [None]
  - PYREXIA [None]
  - RADICULITIS LUMBOSACRAL [None]
  - RADICULOPATHY [None]
  - RASH ERYTHEMATOUS [None]
  - RED BLOOD CELL COUNT DECREASED [None]
  - RESTLESS LEGS SYNDROME [None]
  - RHINITIS ALLERGIC [None]
  - ROAD TRAFFIC ACCIDENT [None]
  - SEDATION [None]
  - SENSATION OF PRESSURE [None]
  - SENSORY DISTURBANCE [None]
  - SIALOADENITIS [None]
  - SINUS DISORDER [None]
  - SINUSITIS [None]
  - SKIN CANDIDA [None]
  - SKIN LACERATION [None]
  - SNEEZING [None]
  - SOMATISATION DISORDER [None]
  - SOMNOLENCE [None]
  - SPEECH DISORDER [None]
  - STRESS SYMPTOMS [None]
  - SUICIDAL IDEATION [None]
  - SUPRAVENTRICULAR TACHYCARDIA [None]
  - SWELLING [None]
  - SYNCOPE [None]
  - TARDIVE DYSKINESIA [None]
  - TENDONITIS [None]
  - THERMAL BURN [None]
  - THIRST [None]
  - THROMBIN TIME SHORTENED [None]
  - TINNITUS [None]
  - TONGUE DISORDER [None]
  - TONGUE OEDEMA [None]
  - TOOTH DISORDER [None]
  - TREMOR [None]
  - TUBO-OVARIAN ABSCESS [None]
  - UPPER RESPIRATORY TRACT INFECTION [None]
  - URINARY TRACT INFECTION [None]
  - VAGINAL CANDIDIASIS [None]
  - VAGINAL DISCHARGE [None]
  - VAGINAL HAEMORRHAGE [None]
  - VERTIGO POSITIONAL [None]
  - VESTIBULAR NEURONITIS [None]
  - VIRAL INFECTION [None]
  - VIRAL LABYRINTHITIS [None]
  - VISION BLURRED [None]
  - VISUAL FIELD DEFECT [None]
  - WEIGHT DECREASED [None]
  - WEIGHT INCREASED [None]
  - WHITE BLOOD CELL COUNT ABNORMAL [None]
  - WHITE BLOOD CELL COUNT DECREASED [None]
  - WOUND INFECTION [None]
  - WRIST FRACTURE [None]
